FAERS Safety Report 7426178-3 (Version None)
Quarter: 2011Q2

REPORT INFORMATION
  Report Type: 
  Country: None (occurrence: None)
  Receive Date: 20110420
  Receipt Date: 20110418
  Transmission Date: 20111010
  Serious: Yes (Death)
  Sender: FDA-Public Use
  Company Number: PHHY2011VE32698

PATIENT
  Sex: Female

DRUGS (6)
  1. ASPIRIN [Concomitant]
  2. ACLASTA [Suspect]
     Indication: OSTEOPOROSIS
     Dosage: 5 MG,
     Route: 042
     Dates: start: 20100823
  3. EOSINA [Concomitant]
  4. PREXOQUIN [Concomitant]
     Dosage: 90 MG, UNK
  5. VITAMINS [Concomitant]
  6. CALCIBON D [Concomitant]

REACTIONS (1)
  - COLON CANCER [None]
